FAERS Safety Report 5824183-1 (Version None)
Quarter: 2008Q3

REPORT INFORMATION
  Report Type: 
  Country: None (occurrence: None)
  Receive Date: 20080718
  Receipt Date: 20080612
  Transmission Date: 20090109
  Serious: Yes (Other)
  Sender: FDA-Public Use
  Company Number: US-WYE-H04518308

PATIENT
  Age: 63 Year
  Sex: Female
  Weight: 79.45 kg

DRUGS (5)
  1. ADVIL PM [Suspect]
     Indication: INSOMNIA
     Dosage: 2 CAPLETS DAILY AT BEDTIME, ORAL
     Route: 048
     Dates: start: 20080101, end: 20080501
  2. ADVIL PM [Suspect]
     Indication: PAIN
     Dosage: 2 CAPLETS DAILY AT BEDTIME, ORAL
     Route: 048
     Dates: start: 20080101, end: 20080501
  3. MULTIVITAMINS, PLAIN (MULTIVITAMINS, PLAIN) [Concomitant]
  4. NEXIUM [Concomitant]
  5. CALCIUM (CALCIUM) [Concomitant]

REACTIONS (1)
  - MOOD ALTERED [None]
